FAERS Safety Report 8836702 (Version 1)
Quarter: 2012Q4

REPORT INFORMATION
  Report Type: Spontaneous
  Country: US (occurrence: None)
  Receive Date: 20121010
  Receipt Date: 20121010
  Transmission Date: 20130627
  Serious: Yes (Hospitalization)
  Sender: FDA-Public Use
  Company Number: 2012P1060107

PATIENT
  Age: 52 Year
  Sex: Male
  Weight: 111.13 kg

DRUGS (3)
  1. LAMOTRIGINE [Suspect]
     Indication: BIPOLAR DISORDER
     Route: 048
     Dates: end: 20120704
  2. LAMOTRIGINE [Suspect]
     Indication: BIPOLAR DISORDER
     Route: 048
     Dates: start: 20120705, end: 20120727
  3. SIMVASTATIN [Concomitant]

REACTIONS (20)
  - Dizziness [None]
  - Visual impairment [None]
  - Vision blurred [None]
  - Movement disorder [None]
  - Hypertension [None]
  - Rash erythematous [None]
  - Bradyphrenia [None]
  - Dysgeusia [None]
  - Irritability [None]
  - Frustration [None]
  - Decreased interest [None]
  - Disturbance in attention [None]
  - Activities of daily living impaired [None]
  - Hypoaesthesia oral [None]
  - Hypoaesthesia [None]
  - Hypoaesthesia [None]
  - Accidental overdose [None]
  - Illusion [None]
  - Motor dysfunction [None]
  - Drug dispensing error [None]
